FAERS Safety Report 24136672 (Version 1)
Quarter: 2024Q3

REPORT INFORMATION
  Report Type: Spontaneous
  Country: US (occurrence: US)
  Receive Date: 20240725
  Receipt Date: 20240725
  Transmission Date: 20241017
  Serious: Yes (Hospitalization)
  Sender: MYLAN
  Company Number: US-MYLANLABS-2024M1068108

PATIENT
  Age: 45 Day
  Sex: Male

DRUGS (12)
  1. RIFAMPIN [Suspect]
     Active Substance: RIFAMPIN
     Indication: Congenital tuberculosis
     Dosage: 15 MILLIGRAM/KILOGRAM, QD
     Route: 048
  2. RIFAMPIN [Suspect]
     Active Substance: RIFAMPIN
     Dosage: 20 MILLIGRAM/KILOGRAM, QD
     Route: 048
  3. VANCOMYCIN [Suspect]
     Active Substance: VANCOMYCIN
     Indication: Congenital tuberculosis
     Dosage: 15 MILLIGRAM/KILOGRAM, Q8H (EVERY 8 H)
     Route: 065
  4. VANCOMYCIN [Suspect]
     Active Substance: VANCOMYCIN
     Dosage: UNK
     Route: 065
  5. ISONIAZID [Suspect]
     Active Substance: ISONIAZID
     Indication: Congenital tuberculosis
     Dosage: 10 MILLIGRAM/KILOGRAM, QD
     Route: 048
  6. ISONIAZID [Suspect]
     Active Substance: ISONIAZID
     Dosage: 15 MILLIGRAM/KILOGRAM, QD
     Route: 048
  7. PYRIDOXINE [Suspect]
     Active Substance: PYRIDOXINE
     Indication: Congenital tuberculosis
     Dosage: UNK
     Route: 065
  8. PYRAZINAMIDE [Suspect]
     Active Substance: PYRAZINAMIDE
     Indication: Congenital tuberculosis
     Dosage: 35 MILLIGRAM/KILOGRAM, QD
     Route: 065
  9. ETHAMBUTOL [Suspect]
     Active Substance: ETHAMBUTOL HYDROCHLORIDE
     Indication: Congenital tuberculosis
     Dosage: 20 MILLIGRAM/KILOGRAM
     Route: 065
  10. MEROPENEM [Suspect]
     Active Substance: MEROPENEM
     Indication: Tuberculosis gastrointestinal
     Dosage: UNK
     Route: 065
  11. AMIKACIN [Suspect]
     Active Substance: AMIKACIN
     Indication: Congenital tuberculosis
     Dosage: UNK
     Route: 065
  12. PIPERACILLIN AND TAZOBACTAM [Concomitant]
     Active Substance: PIPERACILLIN SODIUM\TAZOBACTAM SODIUM
     Indication: Sepsis neonatal
     Dosage: 80 MILLIGRAM/KILOGRAM, Q6H (EVERY 6 HOUR)
     Route: 065

REACTIONS (1)
  - Paradoxical drug reaction [Recovered/Resolved]
